FAERS Safety Report 18997280 (Version 1)
Quarter: 2021Q1

REPORT INFORMATION
  Report Type: Spontaneous
  Country: US (occurrence: US)
  Receive Date: 20210311
  Receipt Date: 20210311
  Transmission Date: 20210420
  Serious: No
  Sender: FDA-Public Use
  Company Number: US-P+L DEVELOPMENTS OF NEWYORK CORPORATION-2107849

PATIENT
  Age: 76 Year
  Sex: Female
  Weight: 59.09 kg

DRUGS (1)
  1. NICOTINE POLACRILEX [Suspect]
     Active Substance: NICOTINE
     Indication: SMOKING CESSATION THERAPY
     Route: 048
     Dates: start: 202102, end: 202102

REACTIONS (5)
  - Dysgeusia [Unknown]
  - Oral discomfort [Unknown]
  - Urticaria [Unknown]
  - Product use complaint [Unknown]
  - Nausea [Unknown]

NARRATIVE: CASE EVENT DATE: 202102
